FAERS Safety Report 22741674 (Version 3)
Quarter: 2024Q1

REPORT INFORMATION
  Report Type: Spontaneous
  Country: CA (occurrence: CA)
  Receive Date: 20230724
  Receipt Date: 20240122
  Transmission Date: 20240410
  Serious: Yes (Hospitalization, Other)
  Sender: FDA-Public Use
  Company Number: CA-MLMSERVICE-20230706-4379011-1

PATIENT
  Age: 5 Year
  Sex: Female

DRUGS (9)
  1. METHOTREXATE [Interacting]
     Active Substance: METHOTREXATE
     Indication: B-cell type acute leukaemia
     Dosage: 12 MILLIGRAM/SQ. METER (1 TOTAL) (INTRATHECAL (IT) MTX 12 MG/M2 ON DAY 1 (13:43))
     Route: 037
  2. METHOTREXATE [Interacting]
     Active Substance: METHOTREXATE
     Dosage: 200 MILLIGRAM/SQ. METER (1 TOTAL) DAY 11 (16:51)-200 MG/M2/DOSE IV
     Route: 042
  3. METHOTREXATE [Interacting]
     Active Substance: METHOTREXATE
     Dosage: 250 MILLIGRAM/SQ. METER (1 TOTAL) (DAY 21 (14:50)-250 MG/M2/DOSE IV)
     Route: 042
  4. METHOTREXATE [Interacting]
     Active Substance: METHOTREXATE
     Dosage: 12 MILLIGRAM (1 TOTAL) (DAY 31 (13:11)-12 MG IT)
     Route: 037
  5. METHOTREXATE [Interacting]
     Active Substance: METHOTREXATE
     Dosage: 300 MILLIGRA (1 TOTAL) (DAY 31 (13:11)-300 MG/M2/DOSE IV)
     Route: 042
  6. METHOTREXATE [Interacting]
     Active Substance: METHOTREXATE
     Dosage: 200 MILLIGRAM/SQ. METER (1 TOTAL) (ESCALATING DOSES STARTING AT 200 MG/M2/DOSE ON DAY 1 (13:43))
     Route: 042
  7. METHOTREXATE [Interacting]
     Active Substance: METHOTREXATE
     Dosage: 350 MILLIGRAM/SQ. METER (1 TOTAL) (DAY 41 (10:15))
     Route: 042
  8. ASPIRIN [Interacting]
     Active Substance: ASPIRIN
     Indication: Cerebrovascular accident prophylaxis
     Dosage: 80 MILLIGRAM, ONCE A DAY (LOW-DOSE)
     Route: 065
  9. VINCRISTINE [Concomitant]
     Active Substance: VINCRISTINE
     Indication: B-cell type acute leukaemia
     Dosage: 1.5 MILLIGRAM/SQ. METER, CYCLICAL (1.5 MG/M2/DOSE)
     Route: 065

REACTIONS (2)
  - Nephropathy toxic [Recovered/Resolved]
  - Drug interaction [Recovered/Resolved]
